FAERS Safety Report 5154387-5 (Version None)
Quarter: 2006Q4

REPORT INFORMATION
  Report Type: 
  Country: None (occurrence: None)
  Receive Date: 20061114
  Receipt Date: 20061031
  Transmission Date: 20070319
  Serious: Yes (Other)
  Sender: FDA-Public Use
  Company Number: 2006133645

PATIENT
  Age: 14 Year
  Sex: Female
  Weight: 60 kg

DRUGS (3)
  1. SULPERAZON (SULBACTAM, CEFOPERAZONE) [Suspect]
     Indication: PYREXIA
     Dosage: 1 GRAM (0.5 GRAM, 2 IN 1 D), INTRAVENOUS
     Route: 042
     Dates: start: 20060901, end: 20060901
  2. ROCEPHIN [Concomitant]
  3. CECLOR [Concomitant]

REACTIONS (3)
  - AMNESTIC DISORDER [None]
  - CONVERSION DISORDER [None]
  - MUSCLE TWITCHING [None]
